FAERS Safety Report 4508581-4 (Version None)
Quarter: 2004Q4

REPORT INFORMATION
  Report Type: 
  Country: None (occurrence: None)
  Receive Date: 20041123
  Receipt Date: 20040412
  Transmission Date: 20050328
  Serious: No
  Sender: FDA-Public Use
  Company Number: US-GLAXOSMITHKLINE-A0506858A

PATIENT
  Age: 81 Year

DRUGS (10)
  1. WELLBUTRIN SR [Suspect]
     Indication: DEPRESSION
     Dosage: 150MG PER DAY
     Route: 048
     Dates: start: 20040323
  2. NORVASC [Concomitant]
  3. LISINOPRIL [Concomitant]
  4. ATENOLOL [Concomitant]
  5. CLONIDINE [Concomitant]
  6. PAROXETINE HCL [Concomitant]
  7. PLAVIX [Concomitant]
  8. PEPCID [Concomitant]
  9. NITRO PATCH [Concomitant]
  10. INSULIN [Concomitant]

REACTIONS (1)
  - VOMITING [None]
